FAERS Safety Report 23680873 (Version 3)
Quarter: 2024Q2

REPORT INFORMATION
  Report Type: Spontaneous
  Country: US (occurrence: None)
  Receive Date: 20240328
  Receipt Date: 20240429
  Transmission Date: 20240716
  Serious: No
  Sender: FDA-Public Use
  Company Number: 2024A062941

PATIENT
  Sex: Male

DRUGS (1)
  1. TEZEPELUMAB-EKKO [Suspect]
     Active Substance: TEZEPELUMAB-EKKO
     Indication: Asthma
     Dates: start: 20240307, end: 20240308

REACTIONS (2)
  - Pruritus [Recovering/Resolving]
  - Dyspnoea [Unknown]
